FAERS Safety Report 8548492-0 (Version None)
Quarter: 2012Q3

REPORT INFORMATION
  Report Type: 
  Country: None (occurrence: None)
  Receive Date: 20120730
  Receipt Date: 20120720
  Transmission Date: 20120928
  Serious: Yes (Hospitalization)
  Sender: FDA-Public Use
  Company Number: US-JNJFOC-20120711941

PATIENT
  Age: 22 Year
  Sex: Female
  Weight: 54.3 kg

DRUGS (4)
  1. ACETAMINOPHEN [Suspect]
     Indication: PRODUCT USED FOR UNKNOWN INDICATION
     Route: 048
  2. BUPROPION HCL [Suspect]
     Indication: PRODUCT USED FOR UNKNOWN INDICATION
     Route: 065
  3. ACETAMINOPHEN [Suspect]
     Route: 048
  4. ETHANOL [Suspect]
     Indication: PRODUCT USED FOR UNKNOWN INDICATION
     Route: 048

REACTIONS (6)
  - VOMITING [None]
  - SELF INJURIOUS BEHAVIOUR [None]
  - RHABDOMYOLYSIS [None]
  - CONVULSION [None]
  - INTENTIONAL OVERDOSE [None]
  - TRANSAMINASES INCREASED [None]
